FAERS Safety Report 8981076 (Version 2)
Quarter: 2012Q4

REPORT INFORMATION
  Report Type: 
  Country: GB (occurrence: GB)
  Receive Date: 20121221
  Receipt Date: 20121228
  Transmission Date: 20130627
  Serious: Yes (Hospitalization)
  Sender: FDA-Public Use
  Company Number: GB-PFIZER INC-2012317949

PATIENT
  Age: 90 Year
  Sex: Female

DRUGS (8)
  1. RAMIPRIL [Suspect]
     Indication: DRUG USE FOR UNKNOWN INDICATION
     Dosage: 5 mg, 1x/day
     Route: 065
  2. TRIMETHOPRIM [Interacting]
     Indication: URINARY TRACT INFECTION
     Dosage: 200 mg, 2x/day
     Route: 048
     Dates: start: 20110916, end: 20110920
  3. TRIMETHOPRIM [Interacting]
     Dosage: UNK
     Dates: start: 201109
  4. FERROUS SULPHATE [Concomitant]
     Indication: DRUG USE FOR UNKNOWN INDICATION
     Dosage: UNK
     Route: 065
  5. ZOPICLONE [Concomitant]
     Indication: DRUG USE FOR UNKNOWN INDICATION
     Dosage: UNK
     Route: 065
  6. CLOPIDOGREL [Concomitant]
     Indication: DRUG USE FOR UNKNOWN INDICATION
     Dosage: UNK
     Route: 065
  7. ISOSORBIDE MONONITRATE [Concomitant]
     Indication: DRUG USE FOR UNKNOWN INDICATION
     Dosage: UNK
     Route: 065
  8. BISOPROLOL [Concomitant]
     Indication: DRUG USE FOR UNKNOWN INDICATION
     Dosage: UNK
     Route: 065

REACTIONS (9)
  - Hyperkalaemia [Recovered/Resolved]
  - Renal failure acute [Recovered/Resolved]
  - Cough [Unknown]
  - Fall [Unknown]
  - Cardiac disorder [Unknown]
  - Hypertension [Unknown]
  - Potentiating drug interaction [Unknown]
  - Renal impairment [Unknown]
  - Urinary tract infection [Unknown]
